FAERS Safety Report 10051364 (Version 1)
Quarter: 2014Q2

REPORT INFORMATION
  Report Type: Spontaneous
  Country: US (occurrence: US)
  Receive Date: 20140401
  Receipt Date: 20140401
  Transmission Date: 20141212
  Serious: No
  Sender: FDA-Public Use
  Company Number: US-PFIZER INC-2014088408

PATIENT
  Age: 68 Year
  Sex: Female

DRUGS (1)
  1. XELJANZ [Suspect]
     Indication: RHEUMATOID ARTHRITIS
     Dosage: 5 MG, 2X/DAY (1 TABLET)
     Route: 048
     Dates: start: 20140317, end: 20140321

REACTIONS (4)
  - Gastrointestinal disorder [Unknown]
  - Gastric disorder [Unknown]
  - Diarrhoea [Unknown]
  - Asthenia [Unknown]
